FAERS Safety Report 25032742 (Version 1)
Quarter: 2025Q1

REPORT INFORMATION
  Report Type: Report from Study
  Country: US (occurrence: US)
  Receive Date: 20250303
  Receipt Date: 20250303
  Transmission Date: 20250408
  Serious: Yes (Other)
  Sender: GLAXOSMITHKLINE
  Company Number: US-GLAXOSMITHKLINE INC-US2025022983

PATIENT

DRUGS (1)
  1. BELIMUMAB [Suspect]
     Active Substance: BELIMUMAB
     Indication: Systemic lupus erythematosus

REACTIONS (5)
  - Systemic lupus erythematosus [Recovering/Resolving]
  - Confusional state [Recovering/Resolving]
  - Middle insomnia [Recovering/Resolving]
  - Gait inability [Recovering/Resolving]
  - Product dose omission issue [Unknown]
